FAERS Safety Report 7315738-6 (Version None)
Quarter: 2011Q1

REPORT INFORMATION
  Report Type: 
  Country: None (occurrence: None)
  Receive Date: 20110225
  Receipt Date: 20110216
  Transmission Date: 20110831
  Serious: Yes (Other)
  Sender: FDA-Public Use
  Company Number: FI-JNJFOC-20110205838

PATIENT
  Age: 30 Year
  Sex: Female

DRUGS (1)
  1. SIMPONI [Suspect]
     Indication: RHEUMATOID ARTHRITIS
     Route: 058

REACTIONS (4)
  - ERYTHEMA [None]
  - HYPERSENSITIVITY [None]
  - NAUSEA [None]
  - BLOOD PRESSURE DECREASED [None]
